FAERS Safety Report 9276782 (Version 1)
Quarter: 2013Q2

REPORT INFORMATION
  Report Type: Spontaneous
  Country: US (occurrence: US)
  Receive Date: 20130507
  Receipt Date: 20130507
  Transmission Date: 20140414
  Serious: No
  Sender: FDA-Public Use
  Company Number: US-ASTRAZENECA-2013SE28192

PATIENT
  Sex: Female

DRUGS (6)
  1. SEROQUEL [Suspect]
     Route: 048
  2. ABILIFY [Suspect]
     Route: 065
  3. GEODON [Suspect]
     Route: 065
  4. ZYPREXA [Suspect]
     Route: 065
  5. RISPERDAL [Suspect]
     Route: 065
  6. UNSPECIFIED ANTIPSYCHOTICS [Suspect]
     Route: 065

REACTIONS (5)
  - Anxiety [Unknown]
  - Adverse event [Unknown]
  - Weight increased [Unknown]
  - Blood cholesterol increased [Unknown]
  - Intentional drug misuse [Unknown]
